FAERS Safety Report 7041631-2 (Version None)
Quarter: 2010Q4

REPORT INFORMATION
  Report Type: 
  Country: None (occurrence: None)
  Receive Date: 20101013
  Receipt Date: 20100330
  Transmission Date: 20110411
  Serious: No
  Sender: FDA-Public Use
  Company Number: US-ASTRAZENECA-2010SE13986

PATIENT
  Age: 18679 Day
  Sex: Male
  Weight: 84.8 kg

DRUGS (8)
  1. SYMBICORT [Suspect]
     Dosage: 160/4.5 (2 PUFFS)
     Route: 055
  2. SYNTHROID [Concomitant]
  3. RISPIDOL [Concomitant]
  4. POTASSIUM CHLORIDE [Concomitant]
  5. ATENOLOL [Concomitant]
  6. OXYCODONE HCL [Concomitant]
  7. MORPHINE [Concomitant]
  8. FENEGREN [Concomitant]

REACTIONS (1)
  - BREATH SOUNDS ABNORMAL [None]
